FAERS Safety Report 6042932-7 (Version None)
Quarter: 2009Q1

REPORT INFORMATION
  Report Type: 
  Country: None (occurrence: None)
  Receive Date: 20090119
  Receipt Date: 20090113
  Transmission Date: 20090719
  Serious: Yes (Death)
  Sender: FDA-Public Use
  Company Number: B0554160A

PATIENT
  Age: 3 Month
  Sex: Female

DRUGS (1)
  1. ZELITREX [Suspect]
     Indication: ANTIVIRAL PROPHYLAXIS

REACTIONS (3)
  - DELIVERY [None]
  - DRUG EXPOSURE DURING PREGNANCY [None]
  - SUDDEN INFANT DEATH SYNDROME [None]
